FAERS Safety Report 25663861 (Version 2)
Quarter: 2025Q3

REPORT INFORMATION
  Report Type: Spontaneous
  Country: JP (occurrence: JP)
  Receive Date: 20250811
  Receipt Date: 20250821
  Transmission Date: 20251020
  Serious: Yes (Death, Other)
  Sender: ROCHE
  Company Number: JP-CHUGAI-2025023974

PATIENT
  Age: 61 Year
  Sex: Female
  Weight: 39 kg

DRUGS (3)
  1. PERJETA [Suspect]
     Active Substance: PERTUZUMAB
     Indication: Breast cancer
     Route: 042
     Dates: end: 20250528
  2. HERCEPTIN [Suspect]
     Active Substance: TRASTUZUMAB
     Indication: Breast cancer
     Route: 042
  3. DOCETAXEL [Suspect]
     Active Substance: DOCETAXEL
     Indication: Breast cancer
     Route: 042
     Dates: end: 20250528

REACTIONS (5)
  - Interstitial lung disease [Fatal]
  - Cerebral infarction [Not Recovered/Not Resolved]
  - Pulmonary embolism [Not Recovered/Not Resolved]
  - Renal embolism [Not Recovered/Not Resolved]
  - Splenic infarction [Not Recovered/Not Resolved]

NARRATIVE: CASE EVENT DATE: 20250601
